FAERS Safety Report 7929698-8 (Version None)
Quarter: 2011Q4

REPORT INFORMATION
  Report Type: 
  Country: None (occurrence: None)
  Receive Date: 20111121
  Receipt Date: 20111116
  Transmission Date: 20120403
  Serious: Yes (Other)
  Sender: FDA-Public Use
  Company Number: US-PFIZER INC-2011282094

PATIENT
  Sex: Female
  Weight: 70.295 kg

DRUGS (10)
  1. CHANTIX [Suspect]
     Indication: SMOKING CESSATION THERAPY
     Dosage: UNK
     Route: 048
  2. VALIUM [Concomitant]
     Indication: MULTIPLE SCLEROSIS
     Dosage: 5 MG, AS NEEDED TWO TO THREE TIMES A DAY
     Route: 048
  3. VALIUM [Concomitant]
     Indication: ANXIETY
  4. PROCARDIA [Concomitant]
     Dosage: 60 MG, 1X/DAY
     Route: 048
  5. VALIUM [Concomitant]
     Indication: TEMPOROMANDIBULAR JOINT SYNDROME
  6. PROCARDIA [Concomitant]
     Indication: HYPERTENSION
     Dosage: 30 MG, 1X/DAY
     Route: 048
  7. VALIUM [Concomitant]
     Indication: VERTIGO
  8. PRILOSEC [Concomitant]
     Indication: BARRETT'S OESOPHAGUS
     Dosage: 20 MG, 2X/DAY
     Route: 048
  9. QUINAPRIL [Concomitant]
     Indication: HYPERTENSION
     Dosage: 30 MG, DAILY
     Route: 048
  10. VALIUM [Concomitant]
     Indication: MUSCLE SPASMS

REACTIONS (3)
  - SOMNAMBULISM [None]
  - CONFUSIONAL STATE [None]
  - SLEEP-RELATED EATING DISORDER [None]
